FAERS Safety Report 5470783-0 (Version None)
Quarter: 2007Q3

REPORT INFORMATION
  Report Type: 
  Country: None (occurrence: None)
  Receive Date: 20070928
  Receipt Date: 20070921
  Transmission Date: 20080115
  Serious: Yes (Death)
  Sender: FDA-Public Use
  Company Number: FR-AVENTIS-200713002FR

PATIENT
  Age: 74 Year
  Sex: Male

DRUGS (6)
  1. LOVENOX [Suspect]
     Route: 058
     Dates: start: 20070730, end: 20070815
  2. LOVENOX [Suspect]
     Route: 058
     Dates: start: 20070816, end: 20070820
  3. CALCIPARINE [Suspect]
     Dates: start: 20070816, end: 20070816
  4. BRISTOPEN                          /00040801/ [Concomitant]
     Dates: start: 20070730, end: 20070801
  5. GENTAMICIN [Concomitant]
     Dates: start: 20070730, end: 20070801
  6. ANTIBIOTICS [Concomitant]
     Dates: start: 20070804, end: 20070828

REACTIONS (1)
  - THROMBOCYTOPENIA [None]
